FAERS Safety Report 7332228-5 (Version None)
Quarter: 2011Q1

REPORT INFORMATION
  Report Type: 
  Country: None (occurrence: None)
  Receive Date: 20110304
  Receipt Date: 20110223
  Transmission Date: 20110831
  Serious: Yes (Hospitalization, Other)
  Sender: FDA-Public Use
  Company Number: US-ROCHE-751201

PATIENT
  Sex: Male
  Weight: 98 kg

DRUGS (6)
  1. MOTRIN [Concomitant]
  2. HYDROCHLOROTHIAZIDE [Concomitant]
     Dosage: DOSE:50
     Route: 048
  3. XELODA [Suspect]
     Indication: COLON CANCER STAGE III
     Dosage: 2 WEEKS ON, 1 WEEK OFF
     Route: 048
     Dates: start: 20100117, end: 20101130
  4. PLAVIX [Concomitant]
     Indication: CORONARY ARTERY DISEASE
     Dosage: DOSE: 75
     Route: 048
  5. ASA [Concomitant]
     Indication: CORONARY ARTERY DISEASE
     Dosage: DOSE: 81
     Route: 048
  6. METOPROLOL [Concomitant]
     Indication: HYPERTENSION
     Dosage: OTHER INDICATION:CAD
     Route: 048

REACTIONS (11)
  - DEHYDRATION [None]
  - NAUSEA [None]
  - ABDOMINAL PAIN [None]
  - WEIGHT INCREASED [None]
  - PALMAR-PLANTAR ERYTHRODYSAESTHESIA SYNDROME [None]
  - GASTROINTESTINAL ULCER [None]
  - HYPOTENSION [None]
  - RASH [None]
  - COLITIS [None]
  - DIARRHOEA [None]
  - PROTEIN TOTAL DECREASED [None]
